FAERS Safety Report 7835112-3 (Version None)
Quarter: 2011Q4

REPORT INFORMATION
  Report Type: 
  Country: None (occurrence: None)
  Receive Date: 20111024
  Receipt Date: 20111011
  Transmission Date: 20120403
  Serious: Yes (Other)
  Sender: FDA-Public Use
  Company Number: AU-ELI_LILLY_AND_COMPANY-AU201110002560

PATIENT
  Age: 81 Year
  Sex: Male

DRUGS (8)
  1. COLOXYL [Concomitant]
     Dosage: UNK
  2. MAXOLON [Concomitant]
     Dosage: UNK
  3. CYMBALTA [Suspect]
     Dosage: 30 MG, QD
     Route: 048
  4. SPIRIVA [Concomitant]
     Dosage: UNK
  5. KARVEA                                  /AUS/ [Concomitant]
     Dosage: UNK
  6. CYMBALTA [Suspect]
     Indication: BACK PAIN
     Dosage: 60 MG, UNKNOWN
     Route: 048
     Dates: start: 20110101
  7. SYMBICORT [Concomitant]
     Dosage: UNK
  8. CARTIA                             /00002701/ [Concomitant]
     Dosage: UNK

REACTIONS (5)
  - HEADACHE [None]
  - URINE COLOUR ABNORMAL [None]
  - CONSTIPATION [None]
  - MUSCULAR WEAKNESS [None]
  - JAUNDICE [None]
